FAERS Safety Report 11621792 (Version 1)
Quarter: 2015Q4

REPORT INFORMATION
  Report Type: Other
  Country: IL (occurrence: IL)
  Receive Date: 20151013
  Receipt Date: 20151013
  Transmission Date: 20160304
  Serious: Yes (Hospitalization)
  Sender: FDA-Public Use
  Company Number: IL-ACTELION-A-CH2015-125276

PATIENT
  Age: 1 Year
  Sex: Male

DRUGS (6)
  1. CYCLOSPORIN A [Suspect]
     Active Substance: CYCLOSPORINE
     Dosage: 7 MG/KG, QD
     Route: 042
  2. SILDENAFIL. [Concomitant]
     Active Substance: SILDENAFIL
     Indication: PULMONARY ARTERIAL HYPERTENSION
     Dosage: 4 MG/KG, UNK
     Route: 048
  3. CYCLOSPORIN A [Suspect]
     Active Substance: CYCLOSPORINE
     Dosage: 3 MG/KG, QD
     Route: 042
  4. TRACLEER [Suspect]
     Active Substance: BOSENTAN
     Indication: PULMONARY ARTERIAL HYPERTENSION
     Dosage: 3 MG/KG, QD
     Route: 048
  5. CYCLOSPORIN A [Suspect]
     Active Substance: CYCLOSPORINE
     Indication: PRODUCT USED FOR UNKNOWN INDICATION
     Dosage: 3 MG/KG, QD
     Route: 042
  6. ANTITHYMOCYTE IMMUNOGLOBULIN [Concomitant]
     Active Substance: THYMOCYTE IMMUNE GLOBULIN NOS

REACTIONS (6)
  - Dyspnoea [Unknown]
  - Hepatic enzyme increased [Unknown]
  - Contraindicated drug administered [Unknown]
  - Blood gases abnormal [Unknown]
  - Inhibitory drug interaction [Recovered/Resolved]
  - Tachypnoea [Unknown]
